FAERS Safety Report 14609830 (Version 2)
Quarter: 2018Q2

REPORT INFORMATION
  Report Type: Spontaneous
  Country: IT (occurrence: IT)
  Receive Date: 20180307
  Receipt Date: 20180419
  Transmission Date: 20180711
  Serious: Yes (Other)
  Sender: FDA-Public Use
  Company Number: IT-PFIZER INC-2018090563

PATIENT
  Age: 74 Year
  Sex: Male
  Weight: 80 kg

DRUGS (2)
  1. CEFOTAXIME [Suspect]
     Active Substance: CEFOTAXIME SODIUM
     Indication: PROPHYLAXIS
     Dosage: 1 G, 1X/DAY
     Route: 041
  2. ISOLYTE /01745301/ [Concomitant]
     Dosage: UNK

REACTIONS (3)
  - Hepatic enzyme increased [Recovered/Resolved]
  - Cholestasis [Recovered/Resolved]
  - Hepatic necrosis [Recovered/Resolved]

NARRATIVE: CASE EVENT DATE: 20180129
